FAERS Safety Report 16238747 (Version 1)
Quarter: 2019Q2

REPORT INFORMATION
  Report Type: Spontaneous
  Country: CZ (occurrence: CZ)
  Receive Date: 20190425
  Receipt Date: 20190425
  Transmission Date: 20190711
  Serious: Yes (Life-Threatening, Other)
  Sender: FDA-Public Use
  Company Number: CZ-MYLANLABS-2017M1082235

PATIENT
  Age: 57 Year
  Sex: Male

DRUGS (8)
  1. SUNITINIB [Suspect]
     Active Substance: SUNITINIB
     Indication: PRODUCT USED FOR UNKNOWN INDICATION
     Dosage: UNK
     Route: 065
  2. CLODRONIC ACID [Suspect]
     Active Substance: CLODRONIC ACID
     Indication: RENAL CANCER
     Dosage: UNK
     Route: 048
  3. SUNITINIB MALATE. [Suspect]
     Active Substance: SUNITINIB MALATE
     Indication: RENAL CANCER
     Dosage: UNK
     Route: 065
  4. PAMIDRONATE [Suspect]
     Active Substance: PAMIDRONATE DISODIUM
     Indication: RENAL CANCER
     Dosage: UNK
     Route: 065
  5. CLODRONATE DISODIUM [Suspect]
     Active Substance: CLODRONATE DISODIUM
     Indication: PRODUCT USED FOR UNKNOWN INDICATION
     Dosage: UNK
     Route: 048
  6. NEXAVAR [Suspect]
     Active Substance: SORAFENIB
     Indication: PRODUCT USED FOR UNKNOWN INDICATION
     Dosage: UNK
  7. ZOLEDRONIC ACID [Suspect]
     Active Substance: ZOLEDRONIC ACID
     Indication: PRODUCT USED FOR UNKNOWN INDICATION
     Dosage: UNK
     Route: 048
  8. ZOMETA [Suspect]
     Active Substance: ZOLEDRONIC ACID
     Indication: RENAL CANCER

REACTIONS (3)
  - Osteonecrosis of jaw [Unknown]
  - Osteonecrosis [Unknown]
  - Product use in unapproved indication [Unknown]
